FAERS Safety Report 10566777 (Version 2)
Quarter: 2014Q4

REPORT INFORMATION
  Report Type: Spontaneous
  Country: SE (occurrence: SE)
  Receive Date: 20141105
  Receipt Date: 20141223
  Transmission Date: 20150529
  Serious: Yes (Hospitalization)
  Sender: FDA-Public Use
  Company Number: SE-TEVA-519822ISR

PATIENT
  Age: 56 Year
  Sex: Male

DRUGS (5)
  1. SERTRALINE [Concomitant]
     Active Substance: SERTRALINE HYDROCHLORIDE
  2. OXASCAND [Suspect]
     Active Substance: OXAZEPAM
     Route: 048
     Dates: start: 20130828, end: 20130828
  3. ZYPREXA [Concomitant]
     Active Substance: OLANZAPINE
  4. GABAPENTIN. [Concomitant]
     Active Substance: GABAPENTIN
  5. TRADOLAN RETARD [Concomitant]

REACTIONS (4)
  - Dysarthria [Recovered/Resolved]
  - Dyslogia [Recovered/Resolved]
  - Toxicity to various agents [Recovered/Resolved]
  - Fatigue [Recovered/Resolved]

NARRATIVE: CASE EVENT DATE: 20130828
